FAERS Safety Report 15674921 (Version 3)
Quarter: 2019Q1

REPORT INFORMATION
  Report Type: Spontaneous
  Country: ES (occurrence: ES)
  Receive Date: 20181130
  Receipt Date: 20190119
  Transmission Date: 20190417
  Serious: Yes (Other)
  Sender: FDA-Public Use
  Company Number: ES-ASTELLAS-2018US051099

PATIENT
  Sex: Male
  Weight: .84 kg

DRUGS (6)
  1. PREDNISONE. [Suspect]
     Active Substance: PREDNISONE
     Indication: FOETAL EXPOSURE DURING PREGNANCY
     Dosage: UNK UNK, UNKNOWN FREQ.
     Route: 064
  2. CELESTONE [Suspect]
     Active Substance: BETAMETHASONE
     Indication: PULMONARY FUNCTION TEST
     Dosage: UNK UNK, UNKNOWN FREQ.
     Route: 064
  3. TRANDATE [Concomitant]
     Active Substance: LABETALOL HYDROCHLORIDE
     Indication: PRODUCT USED FOR UNKNOWN INDICATION
     Dosage: UNK UNK, UNKNOWN FREQ.
     Route: 064
  4. ACETYLSALICYLIC ACID [Concomitant]
     Active Substance: ASPIRIN
     Indication: PRODUCT USED FOR UNKNOWN INDICATION
     Dosage: UNK UNK, UNKNOWN FREQ.
     Route: 064
  5. ADVAGRAF [Suspect]
     Active Substance: TACROLIMUS
     Indication: FOETAL EXPOSURE DURING PREGNANCY
     Dosage: UNK UNK, UNKNOWN FREQ.
     Route: 064
  6. ADALAT [Concomitant]
     Active Substance: NIFEDIPINE
     Indication: PRODUCT USED FOR UNKNOWN INDICATION
     Dosage: UNK UNK, UNKNOWN FREQ.
     Route: 064

REACTIONS (6)
  - Premature baby [Unknown]
  - Low birth weight baby [Unknown]
  - Neonatal cholestasis [Unknown]
  - Mitral valve incompetence [Recovered/Resolved]
  - Neonatal respiratory distress syndrome [Unknown]
  - Hypertrophic cardiomyopathy [Recovered/Resolved]
